FAERS Safety Report 8072619-0 (Version None)
Quarter: 2011Q4

REPORT INFORMATION
  Report Type: 
  Country: None (occurrence: None)
  Receive Date: 20111221
  Receipt Date: 20101217
  Transmission Date: 20120403
  Serious: Yes (Other)
  Sender: FDA-Public Use
  Company Number: PHHY2010US59316

PATIENT
  Age: 58 Year
  Sex: Female
  Weight: 45.3 kg

DRUGS (3)
  1. ADVAIR HFA [Concomitant]
  2. PREDNISONE TAB [Concomitant]
  3. EXJADE [Suspect]
     Indication: APLASTIC ANAEMIA
     Dosage: 250 MG, THREE TABLETS, 750 MG, QD, ORAL
     Route: 048
     Dates: start: 20071105, end: 20100825

REACTIONS (3)
  - DISEASE PROGRESSION [None]
  - NAUSEA [None]
  - ABDOMINAL PAIN [None]
